FAERS Safety Report 17124821 (Version 2)
Quarter: 2019Q4

REPORT INFORMATION
  Report Type: Spontaneous
  Country: US (occurrence: US)
  Receive Date: 20191206
  Receipt Date: 20191218
  Transmission Date: 20200122
  Serious: Yes (Hospitalization)
  Sender: FDA-Public Use
  Company Number: US-FARMAPROD-201911-1904

PATIENT
  Age: 4 Year
  Sex: Female

DRUGS (2)
  1. OXERVATE [Suspect]
     Active Substance: CENEGERMIN-BKBJ
     Indication: ULCERATIVE KERATITIS
     Route: 047
     Dates: start: 20191130
  2. OXERVATE [Suspect]
     Active Substance: CENEGERMIN-BKBJ
     Indication: PERSISTENT CORNEAL EPITHELIAL DEFECT
     Route: 047
     Dates: start: 20191106

REACTIONS (5)
  - Atypical haemolytic uraemic syndrome [Unknown]
  - Diarrhoea [Unknown]
  - Renal failure [Unknown]
  - Seizure [Unknown]
  - Corneal transplant [Unknown]

NARRATIVE: CASE EVENT DATE: 2019
